FAERS Safety Report 12872144 (Version 2)
Quarter: 2016Q4

REPORT INFORMATION
  Report Type: Spontaneous
  Country: JP (occurrence: JP)
  Receive Date: 20161021
  Receipt Date: 20161107
  Transmission Date: 20170207
  Serious: Yes (Life-Threatening, Hospitalization)
  Sender: FDA-Public Use
  Company Number: JP-ROCHE-1834658

PATIENT
  Age: 78 Year
  Sex: Female
  Weight: 56 kg

DRUGS (7)
  1. GASTER [Concomitant]
     Active Substance: FAMOTIDINE
     Route: 065
  2. AVASTIN [Suspect]
     Active Substance: BEVACIZUMAB
     Indication: GLIOBLASTOMA
     Dosage: MOST RECENT DOSE ON 16/SEP/2016.?COMPLETED TREATMENT CYCLE NUMBER: 6
     Route: 041
     Dates: start: 20160628, end: 20160916
  3. MAGNESIUM OXIDE. [Concomitant]
     Active Substance: MAGNESIUM OXIDE
     Route: 065
  4. TEMODAL [Concomitant]
     Active Substance: TEMOZOLOMIDE
     Indication: GLIOBLASTOMA
     Route: 048
     Dates: start: 20160524
  5. PREDONINE [Concomitant]
     Active Substance: PREDNISOLONE\PREDNISOLONE ACETATE\PREDNISOLONE SODIUM SUCCINATE
     Route: 065
  6. ELIQUIS [Suspect]
     Active Substance: APIXABAN
     Indication: CEREBRAL INFARCTION
     Dosage: DOSAGE IS UNCERTAIN.
     Route: 065
  7. E KEPPRA [Concomitant]
     Active Substance: LEVETIRACETAM
     Route: 065

REACTIONS (3)
  - Cardiac failure [Recovering/Resolving]
  - Gastrointestinal haemorrhage [Recovered/Resolved]
  - Diverticulum intestinal [Recovered/Resolved]

NARRATIVE: CASE EVENT DATE: 20160917
